FAERS Safety Report 21987399 (Version 1)
Quarter: 2023Q1

REPORT INFORMATION
  Report Type: Spontaneous
  Country: GB (occurrence: GB)
  Receive Date: 20230214
  Receipt Date: 20230214
  Transmission Date: 20230418
  Serious: No
  Sender: FDA-Public Use
  Company Number: GB-MHRA-MED-202202281447355900-8BIYX

PATIENT
  Age: 75 Year
  Sex: Male
  Weight: 73 kg

DRUGS (8)
  1. CEPHALEXIN [Suspect]
     Active Substance: CEPHALEXIN
     Indication: Urosepsis
     Dosage: 500 MILLIGRAM, TDS
     Route: 065
     Dates: start: 20220221
  2. ATORVASTATIN [Concomitant]
     Active Substance: ATORVASTATIN
     Indication: Hypercholesterolaemia
     Dosage: UNK
     Route: 065
  3. EDOXABAN [Concomitant]
     Active Substance: EDOXABAN
     Indication: Atrial fibrillation
     Dosage: UNK
     Route: 065
  4. FLUDROCORTISONE [Concomitant]
     Active Substance: FLUDROCORTISONE
     Indication: Orthostatic hypotension
     Dosage: UNK
     Route: 065
  5. LANSOPRAZOLE [Concomitant]
     Active Substance: LANSOPRAZOLE
     Indication: Prophylaxis
     Dosage: UNK
     Route: 065
  6. MIDODRINE [Concomitant]
     Active Substance: MIDODRINE
     Indication: Orthostatic hypotension
     Dosage: UNK
     Route: 065
  7. OCTREOTIDE [Concomitant]
     Active Substance: OCTREOTIDE
     Indication: Autonomic nervous system imbalance
     Dosage: UNK
     Route: 065
  8. SOLIFENACIN [Concomitant]
     Active Substance: SOLIFENACIN
     Indication: Incontinence
     Dosage: UNK
     Route: 065

REACTIONS (1)
  - Urticaria [Not Recovered/Not Resolved]

NARRATIVE: CASE EVENT DATE: 20220222
